FAERS Safety Report 4339962-X (Version None)
Quarter: 2004Q2

REPORT INFORMATION
  Report Type: 
  Country: None (occurrence: None)
  Receive Date: 20040412
  Receipt Date: 20040401
  Transmission Date: 20050107
  Serious: Yes (Death)
  Sender: FDA-Public Use
  Company Number: GR-JNJFOC-20040101328

PATIENT
  Age: 41 Year
  Sex: Male
  Weight: 73 kg

DRUGS (6)
  1. REMICADE [Suspect]
     Indication: UVEITIS
     Dosage: 400 MG, INTRAVENOUS
     Route: 042
     Dates: start: 20031217, end: 20040105
  2. MEDROL [Concomitant]
  3. DIAMOX [Concomitant]
  4. TIMOLOL MALEATE [Concomitant]
  5. XALATAN [Concomitant]
  6. ALPHAGAN [Concomitant]

REACTIONS (6)
  - BLOOD CALCIUM DECREASED [None]
  - BLOOD CHOLESTEROL INCREASED [None]
  - BLOOD UREA INCREASED [None]
  - INTESTINAL OBSTRUCTION [None]
  - LOW DENSITY LIPOPROTEIN INCREASED [None]
  - WHITE BLOOD CELL COUNT INCREASED [None]
